FAERS Safety Report 6306064-2 (Version None)
Quarter: 2009Q3

REPORT INFORMATION
  Report Type: 
  Country: None (occurrence: None)
  Receive Date: 20090810
  Receipt Date: 20090810
  Transmission Date: 20100115
  Serious: No
  Sender: FDA-Public Use
  Company Number: None

PATIENT
  Age: 64 Year
  Sex: Female
  Weight: 56.6996 kg

DRUGS (2)
  1. ZANAFLEX [Suspect]
     Indication: MUSCLE SPASTICITY
     Dosage: 8 MG 3 TIMES A DAY PO
     Route: 048
     Dates: start: 20090403, end: 20090803
  2. ZANAFLEX [Concomitant]

REACTIONS (4)
  - DIPLOPIA [None]
  - DRY MOUTH [None]
  - HEPATIC ENZYME INCREASED [None]
  - HYPERHIDROSIS [None]
